FAERS Safety Report 8934270 (Version 1)
Quarter: 2012Q4

REPORT INFORMATION
  Report Type: Report from Study
  Country: FR (occurrence: FR)
  Receive Date: 20121129
  Receipt Date: 20121129
  Transmission Date: 20130627
  Serious: Yes (Death, Life-Threatening, Hospitalization)
  Sender: FDA-Public Use
  Company Number: PHHO2012FR016855

PATIENT
  Age: 66 Year
  Sex: Male

DRUGS (1)
  1. AFINITOR [Suspect]
     Indication: TRANSITIONAL CELL CARCINOMA METASTATIC
     Dosage: 10 mg, UNK
     Route: 048
     Dates: start: 20120625, end: 20120830

REACTIONS (3)
  - Rectal haemorrhage [Fatal]
  - Asthenia [Unknown]
  - Renal failure [Unknown]
